FAERS Safety Report 23349179 (Version 1)
Quarter: 2023Q4

REPORT INFORMATION
  Report Type: Report from Study
  Country: AR (occurrence: AR)
  Receive Date: 20231229
  Receipt Date: 20231229
  Transmission Date: 20240110
  Serious: Yes (Other)
  Sender: FDA-Public Use
  Company Number: AR-UCBSA-2023060424

PATIENT

DRUGS (2)
  1. BRIVARACETAM [Suspect]
     Active Substance: BRIVARACETAM
     Indication: Epileptic encephalopathy
     Dosage: 100?300 MG DIVIDED INTO TWO DAILY DOSES
  2. BRIVARACETAM [Suspect]
     Active Substance: BRIVARACETAM
     Indication: Off label use

REACTIONS (6)
  - Tonic convulsion [Unknown]
  - Somnolence [Unknown]
  - Irritability [Unknown]
  - Decreased appetite [Unknown]
  - Drug ineffective [Unknown]
  - Off label use [Unknown]
